FAERS Safety Report 20200764 (Version 1)
Quarter: 2021Q4

REPORT INFORMATION
  Report Type: Spontaneous
  Country: US (occurrence: None)
  Receive Date: 20211217
  Receipt Date: 20211217
  Transmission Date: 20220304
  Serious: Yes (Hospitalization)
  Sender: FDA-Public Use
  Company Number: None

PATIENT
  Sex: Male

DRUGS (1)
  1. ADVATE [Suspect]
     Active Substance: ANTIHEMOPHILIC FACTOR, HUMAN RECOMBINANT
     Indication: Factor VIII deficiency
     Dosage: INFUSE 5048 UNITS ( 1 VIAL EACH OF 1083 IU AND 3965 IU) IV EVERY OTHER DAY FOR PROPY
     Route: 042

REACTIONS (2)
  - Internal haemorrhage [None]
  - Therapy interrupted [None]
